FAERS Safety Report 10085745 (Version 1)
Quarter: 2014Q2

REPORT INFORMATION
  Report Type: Report from Study
  Country: FR (occurrence: FR)
  Receive Date: 20140418
  Receipt Date: 20140418
  Transmission Date: 20141212
  Serious: Yes (Other)
  Sender: FDA-Public Use
  Company Number: FR-CELGENEUS-056-21880-14041185

PATIENT
  Age: 61 Year
  Sex: Male

DRUGS (7)
  1. REVLIMID [Suspect]
     Indication: PLASMA CELL MYELOMA
     Route: 048
     Dates: start: 20101217
  2. REVLIMID [Suspect]
     Route: 048
     Dates: end: 20120916
  3. BORTEZOMIB [Suspect]
     Indication: PLASMA CELL MYELOMA
     Route: 065
     Dates: start: 20101217
  4. BORTEZOMIB [Suspect]
     Route: 065
     Dates: end: 20110804
  5. DEXAMETHASONE [Suspect]
     Indication: PLASMA CELL MYELOMA
     Route: 065
     Dates: start: 20101217
  6. DEXAMETHASONE [Suspect]
     Route: 065
     Dates: end: 20110805
  7. ZANTADIS [Concomitant]
     Indication: PAIN
     Route: 065

REACTIONS (1)
  - Acute myeloid leukaemia [Not Recovered/Not Resolved]
